FAERS Safety Report 9279979 (Version 3)
Quarter: 2013Q4

REPORT INFORMATION
  Report Type: Spontaneous
  Country: GB (occurrence: GB)
  Receive Date: 20130509
  Receipt Date: 20131031
  Transmission Date: 20140711
  Serious: Yes (Disabling, Other)
  Sender: FDA-Public Use
  Company Number: GB-AMGEN-GBRSP2013031280

PATIENT
  Age: 68 Year
  Sex: Female
  Weight: 81 kg

DRUGS (4)
  1. PROLIA [Suspect]
     Indication: OSTEOPOROSIS POSTMENOPAUSAL
     Dosage: 60 MG, Q6MO
     Route: 058
     Dates: start: 20120424, end: 20130416
  2. PROLIA [Suspect]
     Dosage: UNK UNK, Q6MO
     Route: 058
  3. CALCICHEW D3 [Concomitant]
     Dosage: 500 MG/400 IU, BID
     Route: 048
  4. OMEPRAZOLE [Concomitant]
     Dosage: 20 MG, QD
     Route: 048
     Dates: start: 2013

REACTIONS (11)
  - Pain in jaw [Recovered/Resolved]
  - Cataract [Not Recovered/Not Resolved]
  - Musculoskeletal pain [Recovered/Resolved]
  - Pain in extremity [Not Recovered/Not Resolved]
  - Skin sensitisation [Unknown]
  - Sleep disorder [Unknown]
  - Tooth abscess [Recovered/Resolved]
  - Asthenopia [Unknown]
  - Nausea [Unknown]
  - Bone disorder [Unknown]
  - Neuralgia [Recovered/Resolved]
